FAERS Safety Report 8459405-4 (Version None)
Quarter: 2012Q2

REPORT INFORMATION
  Report Type: 
  Country: None (occurrence: None)
  Receive Date: 20120622
  Receipt Date: 20120611
  Transmission Date: 20120825
  Serious: Yes (Other)
  Sender: FDA-Public Use
  Company Number: DE-JNJFOC-20120507262

PATIENT
  Sex: Female

DRUGS (3)
  1. PALIPERIDONE [Suspect]
     Indication: SCHIZOPHRENIA
     Route: 030
  2. PALIPERIDONE [Suspect]
     Route: 030
     Dates: start: 20110701
  3. SEROQUEL XR [Concomitant]
     Route: 065
     Dates: start: 20100201

REACTIONS (2)
  - HYPERTENSION [None]
  - AKATHISIA [None]
